FAERS Safety Report 4300155-3 (Version None)
Quarter: 2004Q1

REPORT INFORMATION
  Report Type: 
  Country: None (occurrence: None)
  Receive Date: 20040218
  Receipt Date: 20031219
  Transmission Date: 20041129
  Serious: Yes (Death, Hospitalization)
  Sender: FDA-Public Use
  Company Number: T03-USA-03577-01

PATIENT
  Age: 89 Year
  Sex: Male
  Weight: 68.9467 kg

DRUGS (6)
  1. MEMANTINE HCL [Suspect]
     Indication: DEMENTIA ALZHEIMER'S TYPE
     Dosage: 20 MG QD PO
     Route: 048
     Dates: start: 20030217, end: 20030815
  2. DONEPEZIL HCL [Concomitant]
  3. MULTI-VITAMINS [Concomitant]
  4. FLOMAX ^BOEHRINGER INGELHEIM^ (TAMSULOSIN HYDROCHLORIDE) [Concomitant]
  5. SAW PALMETTO [Concomitant]
  6. GINGKGO BILOBA [Concomitant]

REACTIONS (14)
  - AGITATION [None]
  - ATRIAL FIBRILLATION [None]
  - BLOOD CREATINE INCREASED [None]
  - BLOOD POTASSIUM INCREASED [None]
  - BLOOD PRESSURE INCREASED [None]
  - BLOOD UREA INCREASED [None]
  - CEREBROVASCULAR ACCIDENT [None]
  - ELECTROENCEPHALOGRAM ABNORMAL [None]
  - HAEMATEMESIS [None]
  - LOSS OF CONSCIOUSNESS [None]
  - MECHANICAL COMPLICATION OF IMPLANT [None]
  - PNEUMONIA ASPIRATION [None]
  - RESPIRATORY ARREST [None]
  - WHITE BLOOD CELL COUNT INCREASED [None]
